FAERS Safety Report 17009426 (Version 3)
Quarter: 2019Q4

REPORT INFORMATION
  Report Type: Spontaneous
  Country: DE (occurrence: DE)
  Receive Date: 20191108
  Receipt Date: 20191122
  Transmission Date: 20200122
  Serious: Yes (Other)
  Sender: FDA-Public Use
  Company Number: DE-PFIZER INC-2019477117

PATIENT
  Age: 82 Year
  Sex: Female

DRUGS (10)
  1. VESIKUR [Suspect]
     Active Substance: SOLIFENACIN SUCCINATE
     Dosage: 2.5 MG, 1X/DAY
     Route: 065
  2. MIRTAZAPINE. [Suspect]
     Active Substance: MIRTAZAPINE
     Dosage: 45 MG, 1X/DAY
     Route: 065
  3. DORZOLAMIDE [Concomitant]
     Active Substance: DORZOLAMIDE
     Indication: GLAUCOMA
     Dosage: UNK
     Route: 047
  4. LORAZEPAM. [Suspect]
     Active Substance: LORAZEPAM
     Dosage: 1-3 MG, 1X/DAY
     Route: 065
  5. MIRTAZAPINE. [Suspect]
     Active Substance: MIRTAZAPINE
     Indication: DEPRESSION
     Dosage: 15 MG, 1X/DAY
     Route: 065
  6. MIRTAZAPINE. [Suspect]
     Active Substance: MIRTAZAPINE
     Dosage: 30 MG, 1X/DAY
     Route: 065
  7. RISPERIDONE. [Suspect]
     Active Substance: RISPERIDONE
     Indication: PSYCHOTIC DISORDER
     Dosage: 2-3 MG, 1X/DAY
     Route: 065
  8. VESIKUR [Suspect]
     Active Substance: SOLIFENACIN SUCCINATE
     Indication: HYPERTONIC BLADDER
     Dosage: 5 MG, 1X/DAY
     Route: 065
  9. DIPIPERON [Suspect]
     Active Substance: PIPAMPERONE
     Indication: SLEEP DISORDER
     Dosage: 20 MG, 1X/DAY
     Route: 065
  10. RAMIPRIL. [Concomitant]
     Active Substance: RAMIPRIL
     Indication: HYPERTENSION
     Dosage: UNK
     Route: 065

REACTIONS (4)
  - Blood pressure increased [Unknown]
  - Product use in unapproved indication [Unknown]
  - Urinary retention [Recovered/Resolved]
  - Off label use [Unknown]
